FAERS Safety Report 9179742 (Version 1)
Quarter: 2012Q4

REPORT INFORMATION
  Report Type: Report from Study
  Country: US (occurrence: US)
  Receive Date: 20121029
  Receipt Date: 20121029
  Transmission Date: 20130627
  Serious: Yes (Other)
  Sender: FDA-Public Use
  Company Number: US-JNJFOC-20121014639

PATIENT
  Age: 12 Year
  Sex: Female

DRUGS (7)
  1. REMICADE [Suspect]
     Indication: COLITIS
     Route: 042
     Dates: start: 2012
  2. TYLENOL [Concomitant]
     Indication: PREMEDICATION
  3. BENADRYL [Concomitant]
     Indication: PREMEDICATION
  4. PREDNISONE [Concomitant]
  5. STEROIDS NOS [Concomitant]
  6. ENEMAS [Concomitant]
  7. PREVACID [Concomitant]

REACTIONS (3)
  - Migraine [Unknown]
  - Headache [Not Recovered/Not Resolved]
  - Fatigue [Not Recovered/Not Resolved]
